FAERS Safety Report 7535960-3 (Version None)
Quarter: 2011Q2

REPORT INFORMATION
  Report Type: 
  Country: None (occurrence: None)
  Receive Date: 20110609
  Receipt Date: 20110603
  Transmission Date: 20111010
  Serious: Yes (Hospitalization, Other)
  Sender: FDA-Public Use
  Company Number: US-SANOFI-AVENTIS-2011SA035723

PATIENT
  Age: 50 Year
  Sex: Female

DRUGS (7)
  1. LOVENOX [Suspect]
     Indication: DEEP VEIN THROMBOSIS
     Route: 065
     Dates: start: 20070101, end: 20110601
  2. SYNTHROID [Concomitant]
  3. OXYMORPHONE HYDROCHLORIDE [Concomitant]
  4. LOVENOX [Suspect]
     Route: 065
     Dates: start: 20110601
  5. ASPIRIN [Concomitant]
  6. PREDNISONE [Concomitant]
  7. PLAQUENIL [Concomitant]

REACTIONS (2)
  - COAGULATION TIME PROLONGED [None]
  - COMPARTMENT SYNDROME [None]
